FAERS Safety Report 7675266-5 (Version None)
Quarter: 2011Q3

REPORT INFORMATION
  Report Type: 
  Country: None (occurrence: None)
  Receive Date: 20110810
  Receipt Date: 20110808
  Transmission Date: 20111222
  Serious: Yes (Other)
  Sender: FDA-Public Use
  Company Number: GB-CEPHALON-US022752

PATIENT
  Age: 43 Year
  Sex: Female

DRUGS (1)
  1. PROVIGIL [Suspect]
     Indication: NARCOLEPSY
     Route: 048

REACTIONS (3)
  - DRUG DEPENDENCE [None]
  - MITRAL VALVE INCOMPETENCE [None]
  - BLOOD PRESSURE INCREASED [None]
